FAERS Safety Report 18001975 (Version 1)
Quarter: 2020Q3

REPORT INFORMATION
  Report Type: Spontaneous
  Country: US (occurrence: US)
  Receive Date: 20200709
  Receipt Date: 20200709
  Transmission Date: 20201103
  Serious: No
  Sender: FDA-Public Use
  Company Number: US-TEVA-2020-US-1799550

PATIENT
  Sex: Male

DRUGS (13)
  1. ALLOPURINOL. [Suspect]
     Active Substance: ALLOPURINOL
     Route: 065
  2. NOVOLOG [Suspect]
     Active Substance: INSULIN ASPART
     Route: 065
  3. LEVEMIR [Suspect]
     Active Substance: INSULIN DETEMIR
     Route: 065
  4. XANAX [Suspect]
     Active Substance: ALPRAZOLAM
     Route: 065
  5. LEVOTHYROXINE. [Suspect]
     Active Substance: LEVOTHYROXINE
     Route: 065
  6. LISINOPRIL. [Suspect]
     Active Substance: LISINOPRIL
     Route: 065
  7. GLUCOPHAGE [Suspect]
     Active Substance: METFORMIN HYDROCHLORIDE
     Route: 065
  8. GABAPENTIN. [Suspect]
     Active Substance: GABAPENTIN
     Route: 065
  9. BISOPROLOL [Suspect]
     Active Substance: BISOPROLOL
     Route: 065
  10. CLONAZEPAM. [Suspect]
     Active Substance: CLONAZEPAM
     Route: 065
  11. FLUTICASONE. [Suspect]
     Active Substance: FLUTICASONE
     Route: 065
  12. ASPIRIN. [Suspect]
     Active Substance: ASPIRIN
     Route: 065
  13. COLESTIPOL [Suspect]
     Active Substance: COLESTIPOL
     Route: 065

REACTIONS (3)
  - Anxiety [Unknown]
  - Depression [Unknown]
  - Paranoia [Unknown]
